FAERS Safety Report 6103918-7 (Version None)
Quarter: 2009Q1

REPORT INFORMATION
  Report Type: 
  Country: None (occurrence: None)
  Receive Date: 20090305
  Receipt Date: 20090224
  Transmission Date: 20090719
  Serious: Yes (Death, Hospitalization)
  Sender: FDA-Public Use
  Company Number: A0766387A

PATIENT
  Age: 57 Year
  Sex: Female
  Weight: 55.5 kg

DRUGS (12)
  1. LAPATINIB [Suspect]
     Indication: OVARIAN CANCER
     Dosage: 1000MG PER DAY
     Route: 048
     Dates: start: 20051114, end: 20090121
  2. CARBOPLATIN [Suspect]
     Indication: OVARIAN CANCER
     Route: 042
     Dates: start: 20051114, end: 20090106
  3. PACLITAXEL [Suspect]
     Indication: OVARIAN CANCER
     Dosage: 6MGM2 CYCLIC
     Route: 042
     Dates: start: 20051114, end: 20090106
  4. LORAZEPAM [Concomitant]
  5. ASPIRIN [Concomitant]
  6. VITAMIN D [Concomitant]
  7. LIPITOR [Concomitant]
  8. ZOFRAN [Concomitant]
  9. DECADRON [Concomitant]
     Indication: PREMEDICATION
  10. BENADRYL [Concomitant]
     Indication: PREMEDICATION
  11. PEPCID [Concomitant]
     Indication: PREMEDICATION
  12. ATIVAN [Concomitant]
     Indication: PREMEDICATION

REACTIONS (12)
  - DEATH [None]
  - DEPRESSED LEVEL OF CONSCIOUSNESS [None]
  - DYSARTHRIA [None]
  - FALL [None]
  - GAIT DISTURBANCE [None]
  - HEADACHE [None]
  - HYPOAESTHESIA [None]
  - MENINGEAL NEOPLASM [None]
  - MENTAL STATUS CHANGES [None]
  - SPEECH DISORDER [None]
  - VISION BLURRED [None]
  - VOMITING [None]
